FAERS Safety Report 11333541 (Version 1)
Quarter: 2015Q3

REPORT INFORMATION
  Report Type: Spontaneous
  Country: US (occurrence: US)
  Receive Date: 20150803
  Receipt Date: 20150803
  Transmission Date: 20151125
  Serious: No
  Sender: FDA-Public Use
  Company Number: US-ELI_LILLY_AND_COMPANY-US200803003591

PATIENT
  Age: 25 Year
  Sex: Female
  Weight: 61.22 kg

DRUGS (2)
  1. CYMBALTA [Concomitant]
     Active Substance: DULOXETINE HYDROCHLORIDE
     Dosage: 60 MG, DAILY (1/D)
  2. ZYPREXA [Suspect]
     Active Substance: OLANZAPINE
     Indication: BIPOLAR DISORDER
     Dosage: 10 MG, UNK
     Dates: start: 200801

REACTIONS (5)
  - Low density lipoprotein increased [Unknown]
  - Depression [Recovered/Resolved]
  - Mania [Recovered/Resolved]
  - Blood cholesterol increased [Unknown]
  - Lipids increased [Unknown]

NARRATIVE: CASE EVENT DATE: 20080130
